FAERS Safety Report 5752985-9 (Version None)
Quarter: 2008Q2

REPORT INFORMATION
  Report Type: 
  Country: None (occurrence: None)
  Receive Date: 20080527
  Receipt Date: 20080508
  Transmission Date: 20081010
  Serious: Yes (Death)
  Sender: FDA-Public Use
  Company Number: S08-JPN-01849-01

PATIENT
  Age: 71 Year
  Sex: Female
  Weight: 56.8 kg

DRUGS (11)
  1. ESCITALOPRAM [Suspect]
     Indication: MAJOR DEPRESSION
     Dosage: 10 MG QD, PO
     Route: 048
     Dates: start: 20080424, end: 20080501
  2. ESCITALOPRAM [Suspect]
     Indication: MAJOR DEPRESSION
     Dosage: 20 MG QD; PO
     Route: 048
     Dates: start: 20080327, end: 20080423
  3. ESCITALOPRAM [Suspect]
     Indication: MAJOR DEPRESSION
     Dosage: 10 MG QD;PO
     Route: 048
     Dates: start: 20080228, end: 20080326
  4. MOHRUS TAPE (KETOPROFEN) [Concomitant]
  5. MS ONSHIPPO (METHYL SALICYLAT COMPHOR CAPSICUM EXTRACT) [Concomitant]
  6. DEPAS (ETIZOLAM) [Concomitant]
  7. SENNARIDE (SENNOSIDE A+B) [Concomitant]
  8. MAGNESIUM OXIDE [Concomitant]
  9. PARULEON (TRIAZOLAM) [Concomitant]
  10. KEFLEX [Concomitant]
  11. BARAMYCIN [Concomitant]

REACTIONS (10)
  - DECREASED APPETITE [None]
  - DEPRESSION [None]
  - DRUG INEFFECTIVE [None]
  - HYPOCHONDRIASIS [None]
  - MALAISE [None]
  - MINI MENTAL STATUS EXAMINATION ABNORMAL [None]
  - OBESITY [None]
  - ORAL DISORDER [None]
  - VENTRICULAR EXTRASYSTOLES [None]
  - WEIGHT DECREASED [None]
